FAERS Safety Report 8152955-X (Version None)
Quarter: 2012Q1

REPORT INFORMATION
  Report Type: 
  Country: None (occurrence: None)
  Receive Date: 20120221
  Receipt Date: 20120213
  Transmission Date: 20120608
  Serious: Yes (Other)
  Sender: FDA-Public Use
  Company Number: BR-SANOFI-AVENTIS-2012SA009599

PATIENT
  Sex: Female

DRUGS (5)
  1. ALL OTHER THERAPEUTIC PRODUCTS [Concomitant]
  2. SOMALGIN [Concomitant]
     Indication: CARDIAC DISORDER
     Dosage: DOSE:1 UNIT(S)
     Route: 048
     Dates: start: 20041201, end: 20120209
  3. PLAVIX [Suspect]
     Route: 065
  4. IRBESARTAN [Suspect]
     Route: 048
  5. ROSUVASTATIN CALCIUM [Concomitant]
     Route: 048
     Dates: start: 20040101, end: 20120209

REACTIONS (1)
  - CORONARY ARTERY DISEASE [None]
